FAERS Safety Report 8110419 (Version 2)
Quarter: 2014Q1

REPORT INFORMATION
  Report Type: Spontaneous
  Country: US (occurrence: US)
  Receive Date: 20110829
  Receipt Date: 20140123
  Transmission Date: 20141002
  Serious: Yes (Life-Threatening, Other)
  Sender: FDA-Public Use
  Company Number: US-BAYER-2011-078011

PATIENT
  Age: 37 Year
  Sex: Female

DRUGS (5)
  1. YAZ [Suspect]
     Indication: PRODUCT USED FOR UNKNOWN INDICATION
  2. YASMIN [Suspect]
     Indication: PRODUCT USED FOR UNKNOWN INDICATION
  3. OCELLA [Suspect]
     Indication: PRODUCT USED FOR UNKNOWN INDICATION
  4. SYNTHROID [Concomitant]
     Dosage: UNK
     Dates: start: 20080518, end: 20100214
  5. MERIDIA [Concomitant]
     Dosage: UNK
     Dates: start: 20090806, end: 20090919

REACTIONS (10)
  - Cholecystitis [None]
  - Gallbladder disorder [None]
  - Cholelithiasis [None]
  - Gallbladder non-functioning [None]
  - Internal injury [None]
  - Internal injury [None]
  - Anxiety [None]
  - Anhedonia [None]
  - Injury [None]
  - Pain [None]
